FAERS Safety Report 5824894-8 (Version None)
Quarter: 2008Q3

REPORT INFORMATION
  Report Type: 
  Country: None (occurrence: None)
  Receive Date: 20080728
  Receipt Date: 20080721
  Transmission Date: 20090109
  Serious: Yes (Hospitalization)
  Sender: FDA-Public Use
  Company Number: CA-BOEHRINGER INGELHEIM GMBH, GERMANY-2008-CN-00350CN

PATIENT
  Sex: Female

DRUGS (10)
  1. SPIRIVA [Suspect]
     Route: 055
     Dates: start: 20050201
  2. SYMBICORT [Concomitant]
     Dosage: 200/6 TWO PUFFS, BID
  3. HYDROCHLOROTHIAZIDE [Concomitant]
  4. DIXARIT [Concomitant]
     Dosage: TWO TABS, BID
  5. ASCORBIC ACID [Concomitant]
  6. VITAMIN D [Concomitant]
     Dosage: DAILY
  7. VITAMIN E [Concomitant]
     Dosage: DAILY
  8. VITAMIN A [Concomitant]
     Dosage: DAILY
  9. CALCIUM [Concomitant]
  10. ASPIRIN [Concomitant]

REACTIONS (3)
  - ARRHYTHMIA [None]
  - DIZZINESS [None]
  - PALPITATIONS [None]
